FAERS Safety Report 16225264 (Version 3)
Quarter: 2019Q4

REPORT INFORMATION
  Report Type: Spontaneous
  Country: US (occurrence: US)
  Receive Date: 20190422
  Receipt Date: 20191105
  Transmission Date: 20200122
  Serious: Yes (Other)
  Sender: FDA-Public Use
  Company Number: US-ASTRAZENECA-2019SE11165

PATIENT
  Age: 42 Year
  Sex: Male

DRUGS (73)
  1. NEXIUM [Suspect]
     Active Substance: ESOMEPRAZOLE MAGNESIUM
     Indication: GASTROOESOPHAGEAL REFLUX DISEASE
     Route: 065
     Dates: start: 20171229
  2. OMEPRAZOLE. [Suspect]
     Active Substance: OMEPRAZOLE
     Indication: GASTROOESOPHAGEAL REFLUX DISEASE
     Route: 065
     Dates: start: 2009, end: 2014
  3. PANTOPRAZOLE [Suspect]
     Active Substance: PANTOPRAZOLE
     Indication: GASTROOESOPHAGEAL REFLUX DISEASE
     Dosage: GENERIC, 40 MG, UNK
     Route: 065
     Dates: start: 2012
  4. HYDROCODONE BITARTRATE AND ACETAMINOPHEN [Concomitant]
     Active Substance: ACETAMINOPHEN\HYDROCODONE BITARTRATE
  5. NAPROXEN. [Concomitant]
     Active Substance: NAPROXEN
  6. PREDNISONE. [Concomitant]
     Active Substance: PREDNISONE
  7. LORAZEPAM. [Concomitant]
     Active Substance: LORAZEPAM
  8. QUETIAPINE. [Concomitant]
     Active Substance: QUETIAPINE
  9. NAPROXEN. [Concomitant]
     Active Substance: NAPROXEN
  10. NEXIUM [Suspect]
     Active Substance: ESOMEPRAZOLE MAGNESIUM
     Indication: GASTROOESOPHAGEAL REFLUX DISEASE
     Dosage: 40 MG, UNK
     Route: 048
     Dates: start: 2010
  11. OMEPRAZOLE. [Suspect]
     Active Substance: OMEPRAZOLE
     Indication: GASTROOESOPHAGEAL REFLUX DISEASE
     Dosage: GENERIC, 40 MG, UNK
     Route: 065
     Dates: start: 2012
  12. AVALIDE [Concomitant]
     Active Substance: HYDROCHLOROTHIAZIDE\IRBESARTAN
  13. AMOXICILLINE [Concomitant]
     Active Substance: AMOXICILLIN
  14. LAMOTRIGINE. [Concomitant]
     Active Substance: LAMOTRIGINE
  15. LAMOTRIGINE. [Concomitant]
     Active Substance: LAMOTRIGINE
  16. NEXIUM [Suspect]
     Active Substance: ESOMEPRAZOLE MAGNESIUM
     Indication: GASTROOESOPHAGEAL REFLUX DISEASE
     Route: 065
     Dates: start: 2015
  17. ALPRAZOLAM. [Concomitant]
     Active Substance: ALPRAZOLAM
  18. CEPHALEXIN. [Concomitant]
     Active Substance: CEPHALEXIN
  19. LAMOTRIGINE. [Concomitant]
     Active Substance: LAMOTRIGINE
  20. OLANZAPINE. [Concomitant]
     Active Substance: OLANZAPINE
  21. FUROSEMIDE. [Concomitant]
     Active Substance: FUROSEMIDE
  22. PENICILLIN [Concomitant]
     Active Substance: PENICILLIN
  23. ZIPRASIDONE. [Concomitant]
     Active Substance: ZIPRASIDONE
  24. LISINOPRIL. [Concomitant]
     Active Substance: LISINOPRIL
  25. CLONAZEPAM. [Concomitant]
     Active Substance: CLONAZEPAM
  26. LAMOTRIGINE. [Concomitant]
     Active Substance: LAMOTRIGINE
  27. ACETAMINOPHEN. [Concomitant]
     Active Substance: ACETAMINOPHEN
  28. NEXIUM [Suspect]
     Active Substance: ESOMEPRAZOLE MAGNESIUM
     Indication: GASTROOESOPHAGEAL REFLUX DISEASE
     Route: 065
     Dates: start: 20150305
  29. PANTOPRAZOLE [Suspect]
     Active Substance: PANTOPRAZOLE
     Indication: GASTROOESOPHAGEAL REFLUX DISEASE
     Route: 065
     Dates: start: 20151011
  30. LISINOPRIL. [Concomitant]
     Active Substance: LISINOPRIL
  31. PREDNISONE. [Concomitant]
     Active Substance: PREDNISONE
  32. LAMOTRIGINE. [Concomitant]
     Active Substance: LAMOTRIGINE
  33. LORATADINE. [Concomitant]
     Active Substance: LORATADINE
  34. CLONAZEPAM. [Concomitant]
     Active Substance: CLONAZEPAM
  35. OLANZAPINE. [Concomitant]
     Active Substance: OLANZAPINE
  36. ALPRAZOLAM. [Concomitant]
     Active Substance: ALPRAZOLAM
  37. ASPIRIN. [Concomitant]
     Active Substance: ASPIRIN
  38. PANTOPRAZOLE [Suspect]
     Active Substance: PANTOPRAZOLE
     Indication: GASTROOESOPHAGEAL REFLUX DISEASE
     Dosage: GENERIC, 40 MG, UNK
     Route: 065
     Dates: start: 2015, end: 2016
  39. IBUPROFEN. [Concomitant]
     Active Substance: IBUPROFEN
  40. CLONAZEPAM. [Concomitant]
     Active Substance: CLONAZEPAM
  41. SEROQUEL [Concomitant]
     Active Substance: QUETIAPINE FUMARATE
  42. SINGULAIR [Concomitant]
     Active Substance: MONTELUKAST SODIUM
  43. FUROSEMIDE. [Concomitant]
     Active Substance: FUROSEMIDE
  44. PREDNISONE. [Concomitant]
     Active Substance: PREDNISONE
  45. LISINOPRIL. [Concomitant]
     Active Substance: LISINOPRIL
  46. CLONAZEPAM. [Concomitant]
     Active Substance: CLONAZEPAM
  47. NEXIUM [Suspect]
     Active Substance: ESOMEPRAZOLE MAGNESIUM
     Indication: GASTROOESOPHAGEAL REFLUX DISEASE
     Route: 048
     Dates: start: 2015, end: 2017
  48. ALPRAZOLAM. [Concomitant]
     Active Substance: ALPRAZOLAM
  49. GEODON [Concomitant]
     Active Substance: ZIPRASIDONE HYDROCHLORIDE\ZIPRASIDONE MESYLATE
  50. IBUPROFEN. [Concomitant]
     Active Substance: IBUPROFEN
  51. NEXIUM [Suspect]
     Active Substance: ESOMEPRAZOLE MAGNESIUM
     Indication: GASTROOESOPHAGEAL REFLUX DISEASE
     Dosage: 40 MG, UNK
     Route: 048
     Dates: start: 2015
  52. NEXIUM [Suspect]
     Active Substance: ESOMEPRAZOLE MAGNESIUM
     Indication: GASTROOESOPHAGEAL REFLUX DISEASE
     Dosage: GENERIC, 40 MG, UNK
     Route: 048
     Dates: start: 2015
  53. OMEPRAZOLE. [Suspect]
     Active Substance: OMEPRAZOLE
     Indication: GASTROOESOPHAGEAL REFLUX DISEASE
     Route: 065
  54. LORATADINE. [Concomitant]
     Active Substance: LORATADINE
  55. AZITHROMYCIN ANHYDROUS. [Concomitant]
     Active Substance: AZITHROMYCIN ANHYDROUS
  56. PENICILLINE [Concomitant]
     Active Substance: PENICILLIN G
  57. LORAZEPAM. [Concomitant]
     Active Substance: LORAZEPAM
  58. ALPRAZOLAM. [Concomitant]
     Active Substance: ALPRAZOLAM
  59. FLUTICASONE. [Concomitant]
     Active Substance: FLUTICASONE
  60. ALBUTEROL. [Concomitant]
     Active Substance: ALBUTEROL
  61. NEXIUM [Suspect]
     Active Substance: ESOMEPRAZOLE MAGNESIUM
     Indication: GASTROOESOPHAGEAL REFLUX DISEASE
     Route: 048
     Dates: start: 20160629
  62. PANTOPRAZOLE [Suspect]
     Active Substance: PANTOPRAZOLE
     Indication: GASTROOESOPHAGEAL REFLUX DISEASE
     Dosage: GENERIC, 40 MG, UNK
     Route: 065
     Dates: start: 2015
  63. LAMOTRIGINE. [Concomitant]
     Active Substance: LAMOTRIGINE
  64. AMOXICILLIN. [Concomitant]
     Active Substance: AMOXICILLIN
  65. LORATADINE. [Concomitant]
     Active Substance: LORATADINE
  66. AMOX [Concomitant]
     Active Substance: UNSPECIFIED INGREDIENT
  67. NAPROXEN. [Concomitant]
     Active Substance: NAPROXEN
  68. LORATADINE. [Concomitant]
     Active Substance: LORATADINE
  69. OLANZAPINE. [Concomitant]
     Active Substance: OLANZAPINE
  70. HYDROCODONE BITARTRATE AND ACETAMINOPHEN [Concomitant]
     Active Substance: ACETAMINOPHEN\HYDROCODONE BITARTRATE
  71. ZIPRASIDONE. [Concomitant]
     Active Substance: ZIPRASIDONE
  72. AZITHROMYCIN ANHYDROUS. [Concomitant]
     Active Substance: AZITHROMYCIN ANHYDROUS
  73. KLONOPIN [Concomitant]
     Active Substance: CLONAZEPAM

REACTIONS (3)
  - Renal failure [Unknown]
  - Chronic kidney disease [Not Recovered/Not Resolved]
  - Rebound acid hypersecretion [Unknown]

NARRATIVE: CASE EVENT DATE: 2015
